FAERS Safety Report 6206170-7 (Version None)
Quarter: 2009Q2

REPORT INFORMATION
  Report Type: 
  Country: None (occurrence: None)
  Receive Date: 20090528
  Receipt Date: 20080501
  Transmission Date: 20091009
  Serious: No
  Sender: FDA-Public Use
  Company Number: US-KINGPHARMUSA00001-K200800660

PATIENT
  Sex: Female
  Weight: 79.819 kg

DRUGS (1)
  1. AVINZA [Suspect]
     Indication: PAIN
     Dosage: UNK
     Dates: start: 20070101

REACTIONS (1)
  - CONSTIPATION [None]
